FAERS Safety Report 17656036 (Version 2)
Quarter: 2021Q3

REPORT INFORMATION
  Report Type: Spontaneous
  Country: US (occurrence: US)
  Receive Date: 20200410
  Receipt Date: 20210728
  Transmission Date: 20211014
  Serious: No
  Sender: FDA-Public Use
  Company Number: US-PFIZER INC-2020147805

PATIENT
  Age: 65 Year
  Sex: Female

DRUGS (1)
  1. AROMASIN [Suspect]
     Active Substance: EXEMESTANE
     Indication: BREAST CANCER FEMALE
     Dosage: 25 MG, UNK

REACTIONS (4)
  - Fatigue [Unknown]
  - Dyspnoea [Unknown]
  - Night sweats [Unknown]
  - Asthma [Unknown]
